FAERS Safety Report 10128463 (Version 1)
Quarter: 2014Q2

REPORT INFORMATION
  Report Type: Spontaneous
  Country: US (occurrence: None)
  Receive Date: 20140424
  Receipt Date: 20140424
  Transmission Date: 20141212
  Serious: Yes (Hospitalization, Other)
  Sender: FDA-Public Use
  Company Number: ADR-2014278056

PATIENT
  Age: 56 Year
  Sex: Female
  Weight: 70.31 kg

DRUGS (6)
  1. TOPIRAMATE TABLETS, USP 25 MG/INVAGEN INC. [Suspect]
     Indication: MIGRAINE
     Dosage: OD
     Route: 048
     Dates: start: 201403, end: 20140328
  2. SINGULAR [Concomitant]
  3. PEPCID [Concomitant]
  4. PROPRANOLOL [Concomitant]
  5. LIPITOR [Concomitant]
  6. NASACORT [Concomitant]

REACTIONS (1)
  - Brain oedema [None]
